FAERS Safety Report 8102627-2 (Version None)
Quarter: 2011Q4

REPORT INFORMATION
  Report Type: 
  Country: None (occurrence: None)
  Receive Date: 20111222
  Receipt Date: 20110913
  Transmission Date: 20120403
  Serious: Yes (Death)
  Sender: FDA-Public Use
  Company Number: UTC-009990

PATIENT
  Age: 67 Year
  Sex: Female
  Weight: 46.8 kg

DRUGS (3)
  1. TYVASO [Suspect]
     Indication: PULMONARY ARTERIAL HYPERTENSION
     Dosage: 18 TO 54 MICROGRAMS (4 IN 1 D),INHALATION
     Route: 055
     Dates: start: 20110401
  2. DIURETICS (DIURETICS) [Concomitant]
  3. LETAIRIS [Concomitant]

REACTIONS (1)
  - MYOCARDIAL INFARCTION [None]
